FAERS Safety Report 10428403 (Version 1)
Quarter: 2014Q3

REPORT INFORMATION
  Report Type: Spontaneous
  Country: US (occurrence: US)
  Receive Date: 20140903
  Receipt Date: 20140903
  Transmission Date: 20150326
  Serious: Yes (Hospitalization)
  Sender: FDA-Public Use
  Company Number: US-GLAXOSMITHKLINE-A1087555A

PATIENT
  Age: 73 Year
  Sex: Female

DRUGS (2)
  1. PROMACTA [Suspect]
     Active Substance: ELTROMBOPAG OLAMINE
     Indication: PLATELET COUNT DECREASED
     Dosage: 75MG UNKNOWN
     Route: 065
     Dates: start: 20130213
  2. COREG [Suspect]
     Active Substance: CARVEDILOL
     Dosage: 25MG UNKNOWN
     Route: 065

REACTIONS (3)
  - Facial bones fracture [Unknown]
  - Device related infection [Unknown]
  - Fall [Unknown]

NARRATIVE: CASE EVENT DATE: 201308
